FAERS Safety Report 11258713 (Version 2)
Quarter: 2015Q3

REPORT INFORMATION
  Report Type: Spontaneous
  Country: US (occurrence: US)
  Receive Date: 20150710
  Receipt Date: 20150715
  Transmission Date: 20151125
  Serious: No
  Sender: FDA-Public Use
  Company Number: US-PFIZER INC-2015226482

PATIENT
  Age: 56 Year
  Sex: Female
  Weight: 143 kg

DRUGS (2)
  1. NITROSTAT [Suspect]
     Active Substance: NITROGLYCERIN
     Indication: CHEST PAIN
     Dosage: 0.4 MG, AS NEEDED (1 SL Q 5MINS X3 )
     Route: 060
     Dates: start: 20070221
  2. LYRICA [Suspect]
     Active Substance: PREGABALIN
     Indication: PAIN
     Dosage: 75 MG, AS NEEDED (1 CAP TID PRN)
     Route: 048
     Dates: start: 20080214

REACTIONS (4)
  - Mood altered [Unknown]
  - Insomnia [Unknown]
  - Wheezing [Unknown]
  - Blood cholesterol abnormal [Unknown]
